FAERS Safety Report 9260756 (Version 2)
Quarter: 2014Q1

REPORT INFORMATION
  Report Type: Spontaneous
  Country: CM (occurrence: CM)
  Receive Date: 20130429
  Receipt Date: 20140325
  Transmission Date: 20141002
  Serious: Yes (Hospitalization, Other)
  Sender: FDA-Public Use
  Company Number: CM-009507513-1304CMR014504

PATIENT
  Age: 25 Year
  Sex: Male

DRUGS (4)
  1. MECTIZAN [Suspect]
     Indication: ONCHOCERCIASIS
     Dosage: 4 TABLETS
     Route: 048
     Dates: start: 20120911, end: 20120911
  2. MECTIZAN [Suspect]
     Indication: FILARIASIS LYMPHATIC
  3. ALBENDAZOLE [Suspect]
     Indication: ONCHOCERCIASIS
     Dosage: 1 TABLET
     Route: 048
     Dates: start: 20120911
  4. ALBENDAZOLE [Suspect]
     Indication: FILARIASIS LYMPHATIC

REACTIONS (4)
  - Coma [Not Recovered/Not Resolved]
  - Encephalopathy [Not Recovered/Not Resolved]
  - Alcohol poisoning [Not Recovered/Not Resolved]
  - Asthenia [Not Recovered/Not Resolved]
